FAERS Safety Report 6500962-2 (Version None)
Quarter: 2009Q4

REPORT INFORMATION
  Report Type: 
  Country: None (occurrence: None)
  Receive Date: 20091216
  Receipt Date: 20090429
  Transmission Date: 20100525
  Serious: No
  Sender: FDA-Public Use
  Company Number: A0782663A

PATIENT
  Sex: Male

DRUGS (1)
  1. COMMIT [Suspect]
     Indication: TOBACCO USER

REACTIONS (6)
  - DEPRESSION [None]
  - FATIGUE [None]
  - LETHARGY [None]
  - MENTAL IMPAIRMENT [None]
  - PERFORMANCE STATUS DECREASED [None]
  - TREATMENT NONCOMPLIANCE [None]
